FAERS Safety Report 6421660-X (Version None)
Quarter: 2009Q4

REPORT INFORMATION
  Report Type: 
  Country: None (occurrence: None)
  Receive Date: 20091030
  Receipt Date: 20091019
  Transmission Date: 20100525
  Serious: Yes (Other)
  Sender: FDA-Public Use
  Company Number: FR-ROCHE-658481

PATIENT
  Age: 50 Year
  Sex: Male

DRUGS (6)
  1. RIBAVIRIN [Suspect]
     Route: 065
  2. PEG-INTERFERON ALPHA 2B [Suspect]
     Dosage: DRUG REPORTED AS INTERFERON ALPHA-2B
     Route: 065
  3. NOVOMIX [Suspect]
     Route: 065
  4. NOVORAPID [Suspect]
     Route: 065
  5. SERESTA [Concomitant]
     Dosage: DRUG REPORTED AS SERESTA 50
  6. PROZAC [Concomitant]

REACTIONS (2)
  - DRUG INEFFECTIVE [None]
  - RETINOPATHY [None]
